FAERS Safety Report 12173691 (Version 2)
Quarter: 2016Q1

REPORT INFORMATION
  Report Type: Spontaneous
  Country: JP (occurrence: JP)
  Receive Date: 20160311
  Receipt Date: 20160322
  Transmission Date: 20160526
  Serious: Yes (Other)
  Sender: FDA-Public Use
  Company Number: PHJP2016JP005154

PATIENT

DRUGS (1)
  1. COSENTYX [Suspect]
     Active Substance: SECUKINUMAB
     Indication: PSORIASIS
     Dosage: 300 MG, PER ADMINISTRATION
     Route: 058
     Dates: start: 20150331, end: 20160201

REACTIONS (3)
  - Hepatic rupture [Unknown]
  - Hepatocellular carcinoma [Unknown]
  - Hepatic haemorrhage [Unknown]

NARRATIVE: CASE EVENT DATE: 20160309
